FAERS Safety Report 5196853-2 (Version None)
Quarter: 2007Q1

REPORT INFORMATION
  Report Type: 
  Country: None (occurrence: None)
  Receive Date: 20070103
  Receipt Date: 20061227
  Transmission Date: 20070707
  Serious: Yes (Other)
  Sender: FDA-Public Use
  Company Number: 2006SE06931

PATIENT
  Age: 74 Year
  Sex: Male

DRUGS (4)
  1. AMIAS 8MG TABLETS [Suspect]
     Indication: HYPERTENSION
     Route: 065
  2. VALSARTAN [Suspect]
     Indication: HYPERTENSION
     Route: 065
  3. FUROSEMIDE [Interacting]
     Indication: CARDIAC FAILURE CONGESTIVE
     Route: 065
  4. AMLODIPINE [Concomitant]
     Indication: HYPERTENSION
     Route: 065

REACTIONS (7)
  - CHARLES BONNET SYNDROME [None]
  - DRUG INTERACTION [None]
  - HYPOPERFUSION [None]
  - MACULAR OEDEMA [None]
  - RETINAL ARTERY OCCLUSION [None]
  - RETINAL ISCHAEMIA [None]
  - VISUAL ACUITY REDUCED [None]
